FAERS Safety Report 7431806-2 (Version None)
Quarter: 2011Q2

REPORT INFORMATION
  Report Type: 
  Country: None (occurrence: None)
  Receive Date: 20110422
  Receipt Date: 20110411
  Transmission Date: 20111010
  Serious: Yes (Hospitalization)
  Sender: FDA-Public Use
  Company Number: PHHY2011US30360

PATIENT
  Sex: Female
  Weight: 14 kg

DRUGS (5)
  1. AMIODARONE [Concomitant]
     Dosage: UNK
  2. KEPPRA [Concomitant]
     Indication: CONVULSION
     Dosage: 300 MG, BID
     Route: 048
     Dates: start: 20101230
  3. FLECAINIDE ACETATE [Concomitant]
     Dosage: UNK
  4. AFINITOR [Suspect]
     Indication: TUBEROUS SCLEROSIS
     Dosage: 2.5 MG, QD
     Route: 048
     Dates: start: 20110302
  5. SABRIL [Concomitant]
     Indication: CONVULSION
     Dosage: 325 MG, BID
     Route: 048

REACTIONS (3)
  - CONVULSION [None]
  - PYREXIA [None]
  - NASOPHARYNGITIS [None]
